FAERS Safety Report 7268465-8 (Version None)
Quarter: 2010Q4

REPORT INFORMATION
  Report Type: 
  Country: None (occurrence: None)
  Receive Date: 20101206
  Receipt Date: 20101029
  Transmission Date: 20110411
  Serious: No
  Sender: FDA-Public Use
  Company Number: 2010SP057863

PATIENT
  Age: 13 Year
  Sex: Male

DRUGS (2)
  1. SAPHRIS [Suspect]
     Indication: PRODUCT USED FOR UNKNOWN INDICATION
     Dosage: 1 DF
  2. LITHIUM CARBONATE [Concomitant]

REACTIONS (1)
  - SPONTANEOUS PENILE ERECTION [None]
